FAERS Safety Report 14676818 (Version 1)
Quarter: 2018Q1

REPORT INFORMATION
  Report Type: Spontaneous
  Country: CH (occurrence: CH)
  Receive Date: 20180324
  Receipt Date: 20180324
  Transmission Date: 20180509
  Serious: Yes (Other)
  Sender: FDA-Public Use
  Company Number: CH-BRISTOL-MYERS SQUIBB COMPANY-BMS-2018-024419

PATIENT
  Sex: Female
  Weight: 65 kg

DRUGS (1)
  1. SPRYCEL [Suspect]
     Active Substance: DASATINIB
     Indication: LEUKAEMIA
     Dosage: UNK
     Route: 065
     Dates: start: 2011, end: 2017

REACTIONS (2)
  - Periodontitis [Recovering/Resolving]
  - Bone atrophy [Unknown]

NARRATIVE: CASE EVENT DATE: 2012
